FAERS Safety Report 10429604 (Version 2)
Quarter: 2014Q3

REPORT INFORMATION
  Report Type: Spontaneous
  Country: US (occurrence: US)
  Receive Date: 20140904
  Receipt Date: 20140904
  Transmission Date: 20150326
  Serious: Yes (Other)
  Sender: FDA-Public Use
  Company Number: US-JNJFOC-20140607960

PATIENT
  Age: 69 Year
  Sex: Male

DRUGS (16)
  1. PEPCID [Concomitant]
     Active Substance: FAMOTIDINE
     Route: 065
  2. RIFAMPIN. [Concomitant]
     Active Substance: RIFAMPIN
     Route: 065
  3. MIRAPEX [Concomitant]
     Active Substance: PRAMIPEXOLE DIHYDROCHLORIDE
     Route: 065
  4. ARTHROTEC [Concomitant]
     Active Substance: DICLOFENAC SODIUM\MISOPROSTOL
     Route: 065
  5. FLOMAX [Concomitant]
     Active Substance: TAMSULOSIN HYDROCHLORIDE
     Route: 065
  6. SAVELLA [Concomitant]
     Active Substance: MILNACIPRAN HYDROCHLORIDE
     Route: 065
  7. XARELTO [Suspect]
     Active Substance: RIVAROXABAN
     Indication: HIP ARTHROPLASTY
     Route: 048
     Dates: start: 20140529, end: 20140609
  8. BABY ASPIRIN [Suspect]
     Active Substance: ASPIRIN
     Indication: PRODUCT USED FOR UNKNOWN INDICATION
     Route: 048
  9. FLONASE [Concomitant]
     Active Substance: FLUTICASONE PROPIONATE
     Route: 065
  10. HYDROCODONE/APAP [Concomitant]
     Active Substance: ACETAMINOPHEN\HYDROCODONE
     Dosage: 7.5-325 MG 2 TIMES
     Route: 065
  11. XARELTO [Suspect]
     Active Substance: RIVAROXABAN
     Indication: THROMBOSIS PROPHYLAXIS
     Route: 048
     Dates: start: 20140529, end: 20140609
  12. BETIMOL [Concomitant]
     Active Substance: TIMOLOL
     Route: 047
  13. RESTASIS [Concomitant]
     Active Substance: CYCLOSPORINE
     Route: 047
  14. ZOSYN [Concomitant]
     Active Substance: PIPERACILLIN SODIUM\TAZOBACTAM SODIUM
     Dosage: 4.5G/ 100 M
     Route: 065
  15. COREG [Concomitant]
     Active Substance: CARVEDILOL
     Route: 065
  16. LOVAZA [Concomitant]
     Active Substance: OMEGA-3-ACID ETHYL ESTERS
     Dosage: 1 GM 2X2
     Route: 065

REACTIONS (1)
  - Incision site haemorrhage [Recovered/Resolved]

NARRATIVE: CASE EVENT DATE: 20140602
